FAERS Safety Report 8234888-3 (Version None)
Quarter: 2012Q1

REPORT INFORMATION
  Report Type: 
  Country: None (occurrence: None)
  Receive Date: 20120326
  Receipt Date: 20120320
  Transmission Date: 20120608
  Serious: Yes (Hospitalization, Other)
  Sender: FDA-Public Use
  Company Number: US-PFIZER INC-2012072692

PATIENT
  Sex: Female

DRUGS (9)
  1. XANAX [Concomitant]
     Dosage: 0.5 MG, 3X/DAY
  2. LASIX [Concomitant]
     Dosage: 20 MG, UNK
  3. TRAMADOL [Concomitant]
     Indication: PAIN
     Dosage: 50 MG, 3X/DAY
  4. GLUCOTROL XL [Suspect]
     Indication: DIABETES MELLITUS
  5. METOPROLOL [Concomitant]
     Indication: HYPERTENSION
     Dosage: 50 MG, 2X/DAY
  6. GLUCOTROL XL [Suspect]
     Indication: BLOOD GLUCOSE ABNORMAL
     Dosage: 10 MG, 2X/DAY
     Route: 048
  7. PROTONIX [Concomitant]
     Indication: GASTRIC DISORDER
     Dosage: 40 MG, 1X/DAY
  8. CARDIZEM [Concomitant]
     Indication: CARDIAC DISORDER
     Dosage: 360 MG, 1X/DAY
  9. MELOXICAM [Concomitant]
     Indication: ARTHRITIS
     Dosage: 50 MG, 1X/DAY

REACTIONS (4)
  - DRUG INEFFECTIVE [None]
  - DIABETES MELLITUS INADEQUATE CONTROL [None]
  - NEOPLASM [None]
  - UTERINE DISORDER [None]
